FAERS Safety Report 16166447 (Version 1)
Quarter: 2019Q2

REPORT INFORMATION
  Report Type: Spontaneous
  Country: GB (occurrence: GB)
  Receive Date: 20190407
  Receipt Date: 20190407
  Transmission Date: 20190711
  Serious: Yes (Other)
  Sender: FDA-Public Use
  Company Number: GB-DEXPHARM-20190237

PATIENT
  Age: 39 Year
  Sex: Female
  Weight: 90 kg

DRUGS (2)
  1. PANADOL [Concomitant]
     Active Substance: ACETAMINOPHEN
  2. OMEPRAZOLE- NOT DEXCEL^S PRODUCT [Suspect]
     Active Substance: OMEPRAZOLE
     Indication: GASTRIC ULCER
     Route: 048
     Dates: start: 20190222

REACTIONS (5)
  - Joint swelling [Not Recovered/Not Resolved]
  - Limb discomfort [Not Recovered/Not Resolved]
  - Neck pain [Recovered/Resolved]
  - Oropharyngeal pain [Recovered/Resolved]
  - Arthralgia [Not Recovered/Not Resolved]

NARRATIVE: CASE EVENT DATE: 20190305
